FAERS Safety Report 11625328 (Version 1)
Quarter: 2015Q4

REPORT INFORMATION
  Report Type: Spontaneous
  Country: US (occurrence: US)
  Receive Date: 20151013
  Receipt Date: 20151013
  Transmission Date: 20160304
  Serious: No
  Sender: FDA-Public Use
  Company Number: US-GLAXOSMITHKLINE-US2015GSK139634

PATIENT
  Sex: Female

DRUGS (10)
  1. PYRIDIUM [Suspect]
     Active Substance: PHENAZOPYRIDINE
  2. HYDROCODONE [Suspect]
     Active Substance: HYDROCODONE
  3. FLONASE [Suspect]
     Active Substance: FLUTICASONE PROPIONATE
  4. BIAXIN [Suspect]
     Active Substance: CLARITHROMYCIN
  5. PREDNISONE. [Suspect]
     Active Substance: PREDNISONE
  6. DEMEROL [Suspect]
     Active Substance: MEPERIDINE HYDROCHLORIDE
  7. SINGULAIR [Suspect]
     Active Substance: MONTELUKAST SODIUM
  8. IODINE [Suspect]
     Active Substance: IODINE
  9. CODEINE [Suspect]
     Active Substance: CODEINE
  10. NORTRIPTYLINE [Suspect]
     Active Substance: NORTRIPTYLINE

REACTIONS (1)
  - Drug hypersensitivity [Unknown]
